FAERS Safety Report 6506847-X (Version None)
Quarter: 2009Q4

REPORT INFORMATION
  Report Type: 
  Country: None (occurrence: None)
  Receive Date: 20091216
  Receipt Date: 20091201
  Transmission Date: 20100525
  Serious: Yes (Death)
  Sender: FDA-Public Use
  Company Number: 126

PATIENT
  Age: 29 Year
  Sex: Male

DRUGS (2)
  1. FAZACLO ODT [Suspect]
     Indication: BIPOLAR DISORDER
     Dosage: 325 MG PO DAILY
     Route: 048
     Dates: start: 20070320, end: 20070524
  2. LEXAPRO [Concomitant]

REACTIONS (2)
  - DRUG ABUSE [None]
  - UNRESPONSIVE TO STIMULI [None]
